FAERS Safety Report 6720183-8 (Version None)
Quarter: 2010Q2

REPORT INFORMATION
  Report Type: 
  Country: None (occurrence: None)
  Receive Date: 20100511
  Receipt Date: 20100405
  Transmission Date: 20101027
  Serious: No
  Sender: FDA-Public Use
  Company Number: US-ABBOTT-10P-163-0637546-00

PATIENT
  Sex: Male
  Weight: 93.07 kg

DRUGS (5)
  1. NORVIR [Suspect]
     Indication: HIV INFECTION
     Dates: start: 20100301
  2. NORVIR [Suspect]
     Indication: HIV INFECTION
     Dates: start: 20090701, end: 20100301
  3. TRUVADA [Concomitant]
     Indication: HIV INFECTION
  4. REYATAZ [Concomitant]
     Indication: HIV INFECTION
  5. LACTAID [Concomitant]
     Indication: LACTOSE INTOLERANCE

REACTIONS (3)
  - DIARRHOEA [None]
  - PRURITUS [None]
  - RASH GENERALISED [None]
